FAERS Safety Report 5814677-7 (Version None)
Quarter: 2008Q3

REPORT INFORMATION
  Report Type: 
  Country: None (occurrence: None)
  Receive Date: 20080718
  Receipt Date: 20080227
  Transmission Date: 20090109
  Serious: No
  Sender: FDA-Public Use
  Company Number: US-KINGPHARMUSA00001-K200800257

PATIENT

DRUGS (4)
  1. LEVOXYL [Suspect]
     Indication: THYROIDECTOMY
     Dosage: 150 MCG, QD
     Route: 048
     Dates: start: 20060101
  2. LEVOXYL [Suspect]
     Dosage: 25 MCG, QW
     Route: 048
  3. GABAPENTIN [Concomitant]
     Dosage: UNK, QD
     Dates: start: 20080217
  4. VENLAFAXINE HCL [Concomitant]
     Dates: start: 20060101

REACTIONS (7)
  - ABNORMAL BEHAVIOUR [None]
  - BLOOD THYROID STIMULATING HORMONE DECREASED [None]
  - ELEVATED MOOD [None]
  - INCREASED APPETITE [None]
  - INSOMNIA [None]
  - SOMNOLENCE [None]
  - WEIGHT INCREASED [None]
